FAERS Safety Report 16031245 (Version 1)
Quarter: 2019Q1

REPORT INFORMATION
  Report Type: Spontaneous
  Country: US (occurrence: US)
  Receive Date: 20190304
  Receipt Date: 20190304
  Transmission Date: 20190418
  Serious: No
  Sender: FDA-Public Use
  Company Number: US-TEVA-2019-US-1009898

PATIENT
  Sex: Female

DRUGS (3)
  1. LIDOCAINE TOPICAL 5% PATCH ACTAVIS [Suspect]
     Active Substance: LIDOCAINE
     Indication: MUSCLE SPASMS
  2. LIDOCAINE TOPICAL 5% PATCH ACTAVIS [Suspect]
     Active Substance: LIDOCAINE
     Indication: NEURALGIA
  3. LIDOCAINE TOPICAL 5% PATCH ACTAVIS [Suspect]
     Active Substance: LIDOCAINE
     Indication: MYALGIA
     Route: 062
     Dates: start: 20190131, end: 20190203

REACTIONS (5)
  - Tinnitus [Recovering/Resolving]
  - Arthritis [Recovering/Resolving]
  - Oropharyngeal pain [Recovering/Resolving]
  - Nausea [Recovering/Resolving]
  - Dysgeusia [Recovering/Resolving]

NARRATIVE: CASE EVENT DATE: 20190131
